FAERS Safety Report 11213867 (Version 1)
Quarter: 2015Q2

REPORT INFORMATION
  Report Type: Report from Study
  Country: BR (occurrence: BR)
  Receive Date: 20150623
  Receipt Date: 20150623
  Transmission Date: 20150821
  Serious: Yes (Hospitalization)
  Sender: FDA-Public Use
  Company Number: BR-ABBVIE-15P-020-1414432-00

PATIENT
  Age: 32 Year
  Sex: Female
  Weight: 91 kg

DRUGS (4)
  1. LUVOX [Suspect]
     Active Substance: FLUVOXAMINE MALEATE
     Route: 048
     Dates: start: 2013
  2. PARACETAMOL [Suspect]
     Active Substance: ACETAMINOPHEN
     Indication: PRODUCT USED FOR UNKNOWN INDICATION
     Route: 065
     Dates: start: 20150511, end: 20150511
  3. STELAZINE [Concomitant]
     Active Substance: TRIFLUOPERAZINE HYDROCHLORIDE
     Indication: OBSESSIVE-COMPULSIVE DISORDER
     Dosage: DAILY DOSE: 15 MG; MORNING/AFTERNOON/NIGHT
     Route: 048
     Dates: start: 2010
  4. LUVOX [Suspect]
     Active Substance: FLUVOXAMINE MALEATE
     Indication: OBSESSIVE-COMPULSIVE DISORDER
     Dosage: DAILY DOSE: 300 MG AS 1 TABLET AT 08:00AM AND 2 TABLETS AT 10:00PM
     Route: 048

REACTIONS (3)
  - Loss of consciousness [Recovered/Resolved]
  - Suicide attempt [Recovered/Resolved]
  - Anaemia [Unknown]

NARRATIVE: CASE EVENT DATE: 2015
